FAERS Safety Report 10595748 (Version 2)
Quarter: 2015Q1

REPORT INFORMATION
  Report Type: Spontaneous
  Country: US (occurrence: US)
  Receive Date: 20141120
  Receipt Date: 20150217
  Transmission Date: 20150720
  Serious: No
  Sender: FDA-Public Use
  Company Number: US-AMARIN PHARMA, INC.-2014AMR000077

PATIENT
  Age: 67 Year
  Sex: Male
  Weight: 118.04 kg

DRUGS (3)
  1. VASCEPA [Suspect]
     Active Substance: ETHYL ICOSAPENTATE
     Indication: BLOOD CHOLESTEROL INCREASED
     Dosage: TWO CAPSULES TWICE DAILY AROUND MEAL TIME
     Route: 048
     Dates: end: 20141009
  2. VITAMINS [Concomitant]
     Active Substance: VITAMINS
     Indication: PRODUCT USED FOR UNKNOWN INDICATION
     Route: 065
  3. HIGH BLOOD PRESSURE MEDICINE [Concomitant]
     Indication: HYPERTENSION
     Route: 065

REACTIONS (2)
  - Product odour abnormal [Unknown]
  - Diarrhoea [Recovered/Resolved]

NARRATIVE: CASE EVENT DATE: 20141008
